FAERS Safety Report 9813488 (Version 1)
Quarter: 2014Q1

REPORT INFORMATION
  Report Type: Spontaneous
  Country: US (occurrence: None)
  Receive Date: 20140109
  Receipt Date: 20140109
  Transmission Date: 20141002
  Serious: Yes (Hospitalization)
  Sender: FDA-Public Use
  Company Number: CIO14000689

PATIENT
  Age: 24 Year
  Sex: Male

DRUGS (1)
  1. ZZZQUIL [Suspect]
     Indication: INSOMNIA
     Dosage: CONSUMDED 11 OZ WITHIN 3.5 HOUR TIMEFRAME, ORAL
     Route: 048
     Dates: start: 20140101, end: 20140101

REACTIONS (9)
  - Agitation [None]
  - Hallucination [None]
  - Glassy eyes [None]
  - Abnormal behaviour [None]
  - Inappropriate schedule of drug administration [None]
  - Intentional overdose [None]
  - Aggression [None]
  - Patient restraint [None]
  - Liver injury [None]
